FAERS Safety Report 7306271-6 (Version None)
Quarter: 2011Q1

REPORT INFORMATION
  Report Type: 
  Country: None (occurrence: None)
  Receive Date: 20110222
  Receipt Date: 20110209
  Transmission Date: 20110831
  Serious: Yes (Hospitalization)
  Sender: FDA-Public Use
  Company Number: PHHY2011FR06433

PATIENT
  Sex: Female

DRUGS (3)
  1. RASILEZ HCT [Suspect]
     Indication: HYPERTENSION
     Dosage: 1 DF, QD
     Route: 048
     Dates: start: 20100916, end: 20101226
  2. ALLOPURINOL [Concomitant]
     Dosage: 200 MG, QD
     Dates: start: 20101112, end: 20101223
  3. COLCHIMAX [Concomitant]
     Indication: HYPERURICAEMIA
     Dosage: UNK
     Dates: start: 20101028

REACTIONS (13)
  - PRURITUS [None]
  - BRAIN NATRIURETIC PEPTIDE INCREASED [None]
  - DRUG RASH WITH EOSINOPHILIA AND SYSTEMIC SYMPTOMS [None]
  - PYREXIA [None]
  - CONJUNCTIVITIS [None]
  - RASH [None]
  - CHILLS [None]
  - LYMPHADENOPATHY [None]
  - HYPERURICAEMIA [None]
  - RASH PAPULAR [None]
  - DERMATITIS EXFOLIATIVE [None]
  - RENAL FAILURE [None]
  - HEPATIC STEATOSIS [None]
